FAERS Safety Report 5343679-2 (Version None)
Quarter: 2007Q2

REPORT INFORMATION
  Report Type: 
  Country: None (occurrence: None)
  Receive Date: 20070531
  Receipt Date: 20070531
  Transmission Date: 20071010
  Serious: Yes (Other)
  Sender: FDA-Public Use
  Company Number: None

PATIENT
  Sex: Female
  Weight: 50.3493 kg

DRUGS (1)
  1. ZELNORM [Suspect]
     Indication: IRRITABLE BOWEL SYNDROME
     Dosage: 1 TABLET 2 X DAY
     Dates: start: 20060401, end: 20070408

REACTIONS (3)
  - CARDIAC DISORDER [None]
  - EXTRASYSTOLES [None]
  - PALPITATIONS [None]
